FAERS Safety Report 24405971 (Version 1)
Quarter: 2024Q4

REPORT INFORMATION
  Report Type: Spontaneous
  Country: DE (occurrence: DE)
  Receive Date: 20241007
  Receipt Date: 20241007
  Transmission Date: 20250114
  Serious: Yes (Hospitalization)
  Sender: BAUSCH AND LOMB
  Company Number: DE-JNJFOC-20240646167

PATIENT
  Age: 7 Decade
  Sex: Male
  Weight: 82 kg

DRUGS (3)
  1. DEXAMETHASONE [Suspect]
     Active Substance: DEXAMETHASONE
     Indication: Plasma cell myeloma
     Dosage: MOST RECENT DOSE OF DEXAMETHASONE ADMINISTRATION PRIOR TO EVENT WAS ON 31/MAY/2024
     Route: 065
     Dates: start: 20231222
  2. DARZALEX [Suspect]
     Active Substance: DARATUMUMAB
     Indication: Plasma cell myeloma
     Dosage: MOST RECENT DOSE OF DARATUMUMAB  ADMINISTRATION PRIOR TO EVENT WAS ON 31-MAY-2024
     Route: 058
     Dates: start: 20240216, end: 20240531
  3. POMALIDOMIDE [Suspect]
     Active Substance: POMALIDOMIDE
     Indication: Plasma cell myeloma
     Dosage: MOST RECENT DOSE OF POMALIDOMIDE ADMINISTRATION PRIOR TO EVENT WAS ON 07/MAR/2024
     Route: 065
     Dates: start: 20240216, end: 20240307

REACTIONS (2)
  - Pain [Not Recovered/Not Resolved]
  - Pneumonia [Recovered/Resolved]

NARRATIVE: CASE EVENT DATE: 20240613
